FAERS Safety Report 7146271-2 (Version None)
Quarter: 2010Q4

REPORT INFORMATION
  Report Type: 
  Country: None (occurrence: None)
  Receive Date: 20101208
  Receipt Date: 20101130
  Transmission Date: 20110411
  Serious: Yes (Death, Other)
  Sender: FDA-Public Use
  Company Number: JP-ACTELION-A-CH2010-41552

PATIENT
  Sex: Female
  Weight: 54 kg

DRUGS (8)
  1. BOSENTAN TABLET 62.5 MG JPN [Suspect]
     Indication: PULMONARY ARTERIAL HYPERTENSION
     Dosage: 125 MG, BID
     Route: 048
     Dates: start: 20051001, end: 20060704
  2. BOSENTAN TABLET 62.5 MG JPN [Suspect]
     Dosage: 62.5 MG, BID
     Route: 048
     Dates: start: 20050728, end: 20050826
  3. BOSENTAN TABLET 62.5 MG JPN [Suspect]
     Dosage: 31.25 MG, QD
     Route: 048
     Dates: start: 20050901, end: 20051001
  4. BERAPROST SODIUM [Concomitant]
  5. WARFARIN POTASSIUM [Concomitant]
  6. FUROSEMIDE [Concomitant]
  7. OMEPRAZOLE [Concomitant]
  8. OXYGEN [Concomitant]

REACTIONS (3)
  - DEATH [None]
  - INFECTION [None]
  - WHITE BLOOD CELL COUNT ABNORMAL [None]
